FAERS Safety Report 9632899 (Version 4)
Quarter: 2013Q4

REPORT INFORMATION
  Report Type: Report from Study
  Country: CA (occurrence: CA)
  Receive Date: 20131018
  Receipt Date: 20131223
  Transmission Date: 20140711
  Serious: Yes (Other)
  Sender: FDA-Public Use
  Company Number: CA-AMGEN-CANNI2013071903

PATIENT
  Age: 64 Year
  Sex: Male

DRUGS (2)
  1. XGEVA [Suspect]
     Indication: BONE DISORDER
     Dosage: UNK
     Route: 065
     Dates: start: 20120507, end: 20121227
  2. DENOSUMAB [Suspect]
     Indication: PRODUCT USED FOR UNKNOWN INDICATION
     Route: 065

REACTIONS (1)
  - Osteonecrosis of jaw [Not Recovered/Not Resolved]
